FAERS Safety Report 13522319 (Version 2)
Quarter: 2017Q3

REPORT INFORMATION
  Report Type: Spontaneous
  Country: JP (occurrence: JP)
  Receive Date: 20170508
  Receipt Date: 20170907
  Transmission Date: 20171127
  Serious: Yes (Hospitalization)
  Sender: FDA-Public Use
  Company Number: JP-SA-2017SA082049

PATIENT
  Age: 65 Year
  Sex: Male
  Weight: 60 kg

DRUGS (14)
  1. PREDONINE [Concomitant]
     Active Substance: PREDNISOLONE
     Indication: PREMEDICATION
     Route: 065
     Dates: start: 20170128, end: 20170128
  2. PROTECADIN [Concomitant]
     Active Substance: LAFUTIDINE
     Indication: GASTRITIS
     Route: 048
     Dates: start: 20170128, end: 20170501
  3. G-LASTA [Concomitant]
     Active Substance: PEGFILGRASTIM
     Indication: PROPHYLAXIS
     Route: 030
     Dates: start: 20170129, end: 20170129
  4. RANMARK [Suspect]
     Active Substance: DENOSUMAB
     Indication: HORMONE-REFRACTORY PROSTATE CANCER
     Route: 065
     Dates: start: 20161208, end: 20170330
  5. DEXART [Concomitant]
     Active Substance: DEXAMETHASONE SODIUM PHOSPHATE
     Indication: PREMEDICATION
     Route: 042
     Dates: start: 20170128, end: 20170128
  6. RANMARK [Suspect]
     Active Substance: DENOSUMAB
     Indication: PROSTATE CANCER
     Route: 065
     Dates: start: 20161208, end: 20170330
  7. PREDONINE [Concomitant]
     Active Substance: PREDNISOLONE
     Indication: ADVERSE REACTION
     Route: 048
     Dates: start: 20170128, end: 20170501
  8. POLARAMINE [Concomitant]
     Active Substance: DEXCHLORPHENIRAMINE MALEATE
     Indication: PREMEDICATION
     Route: 042
     Dates: start: 20170517, end: 20170517
  9. JEVTANA [Suspect]
     Active Substance: CABAZITAXEL
     Indication: HORMONE-REFRACTORY PROSTATE CANCER
     Route: 042
     Dates: start: 20170128, end: 20170128
  10. PREDONINE [Concomitant]
     Active Substance: PREDNISOLONE
     Indication: PREMEDICATION
     Route: 065
     Dates: start: 20170517, end: 20170517
  11. DEXART [Concomitant]
     Active Substance: DEXAMETHASONE SODIUM PHOSPHATE
     Indication: PREMEDICATION
     Route: 042
     Dates: start: 20170517, end: 20170517
  12. POLARAMINE [Concomitant]
     Active Substance: DEXCHLORPHENIRAMINE MALEATE
     Indication: PREMEDICATION
     Route: 042
     Dates: start: 20170128, end: 20170128
  13. ZOLADEX [Concomitant]
     Active Substance: GOSERELIN ACETATE
     Indication: HORMONE-REFRACTORY PROSTATE CANCER
     Route: 065
     Dates: start: 20101002
  14. JEVTANA [Suspect]
     Active Substance: CABAZITAXEL
     Indication: HORMONE-REFRACTORY PROSTATE CANCER
     Route: 042
     Dates: start: 20170517, end: 20170517

REACTIONS (3)
  - Osteonecrosis of jaw [Recovered/Resolved with Sequelae]
  - Laryngeal oedema [Recovering/Resolving]
  - Pharyngeal oedema [Recovering/Resolving]

NARRATIVE: CASE EVENT DATE: 20170430
